FAERS Safety Report 17363686 (Version 1)
Quarter: 2020Q1

REPORT INFORMATION
  Report Type: Report from Study
  Country: US (occurrence: US)
  Receive Date: 20200203
  Receipt Date: 20200203
  Transmission Date: 20200409
  Serious: Yes (Hospitalization)
  Sender: FDA-Public Use
  Company Number: US-GILEAD-2019-0441753

PATIENT
  Age: 78 Year
  Sex: Male

DRUGS (53)
  1. ERYTHROMYCIN. [Concomitant]
     Active Substance: ERYTHROMYCIN
  2. LEVOTHYROXINE. [Concomitant]
     Active Substance: LEVOTHYROXINE
  3. POLYETHYLENE GLYCOL [Concomitant]
     Active Substance: POLYETHYLENE GLYCOLS
  4. LOSARTAN POTASSIUM. [Concomitant]
     Active Substance: LOSARTAN POTASSIUM
  5. NOVOFEN [IBUPROFEN] [Concomitant]
  6. METRONIDAZOLE. [Concomitant]
     Active Substance: METRONIDAZOLE
  7. ADVAIR HFA [Concomitant]
     Active Substance: FLUTICASONE PROPIONATE\SALMETEROL XINAFOATE
  8. LEVEMIR [Concomitant]
     Active Substance: INSULIN DETEMIR
  9. MONTELUKAST [Concomitant]
     Active Substance: MONTELUKAST SODIUM
  10. MOTEGRITY [Concomitant]
     Active Substance: PRUCALOPRIDE SUCCINATE
  11. SENOKOT [Concomitant]
     Active Substance: SENNOSIDES
  12. SIMETHICONE (DIMETHICONE) [Concomitant]
     Active Substance: DIMETHICONE
  13. ACYCLOVIR [ACICLOVIR] [Concomitant]
     Active Substance: ACYCLOVIR
  14. TRIAMCINOLONE [Concomitant]
     Active Substance: TRIAMCINOLONE
  15. ZENPEP [Concomitant]
     Active Substance: PANCRELIPASE AMYLASE\PANCRELIPASE LIPASE\PANCRELIPASE PROTEASE
  16. POTASSIUM CHLORIDE. [Concomitant]
     Active Substance: POTASSIUM CHLORIDE
  17. SODIUM CHLORIDE. [Concomitant]
     Active Substance: SODIUM CHLORIDE
  18. PREDNISONE. [Concomitant]
     Active Substance: PREDNISONE
  19. AZTREONAM LYSINE [Suspect]
     Active Substance: AZTREONAM LYSINE
     Indication: BRONCHIECTASIS
     Dosage: 75 MG, TID, QOM
     Route: 055
     Dates: start: 20170113
  20. FLONASE [Concomitant]
     Active Substance: FLUTICASONE PROPIONATE
  21. LIPITOR [Concomitant]
     Active Substance: ATORVASTATIN CALCIUM
  22. MIRALAX [Concomitant]
     Active Substance: POLYETHYLENE GLYCOL 3350
  23. METOPROLOL SUCCINATE. [Concomitant]
     Active Substance: METOPROLOL SUCCINATE
  24. TRESIBA [Concomitant]
     Active Substance: INSULIN DEGLUDEC
  25. ACETYLCYSTEINE. [Concomitant]
     Active Substance: ACETYLCYSTEINE
  26. ALBUTEROL [SALBUTAMOL SULFATE] [Concomitant]
     Active Substance: ALBUTEROL SULFATE
  27. ASTEPRO [Concomitant]
     Active Substance: AZELASTINE HYDROCHLORIDE
  28. ELIQUIS [Concomitant]
     Active Substance: APIXABAN
  29. IPRATROPIUM [Concomitant]
     Active Substance: IPRATROPIUM
  30. NOVOLOG [Concomitant]
     Active Substance: INSULIN ASPART
  31. PANTOPRAZOLE [Concomitant]
     Active Substance: PANTOPRAZOLE
  32. PROBIOTICS NOS [Concomitant]
     Active Substance: PROBIOTICS NOS
  33. QVAR [Concomitant]
     Active Substance: BECLOMETHASONE DIPROPIONATE
  34. VIRTUSSIN AC [Concomitant]
     Active Substance: CODEINE PHOSPHATE\GUAIFENESIN
  35. GLUCOGEN [Concomitant]
  36. DICLOFENAC [Concomitant]
     Active Substance: DICLOFENAC
  37. VITAMIN B12 [Concomitant]
     Active Substance: CYANOCOBALAMIN
  38. CLOBETASOL [Concomitant]
     Active Substance: CLOBETASOL
  39. DILTIAZEM. [Concomitant]
     Active Substance: DILTIAZEM
  40. SODIUM BICARBONATE. [Concomitant]
     Active Substance: SODIUM BICARBONATE
  41. TYLENOL 8HR [Concomitant]
     Active Substance: ACETAMINOPHEN
  42. VORICONAZOLE. [Concomitant]
     Active Substance: VORICONAZOLE
  43. BIOTIN [Concomitant]
     Active Substance: BIOTIN
  44. HYDROXYZINE HYDROCHLORIDE. [Concomitant]
     Active Substance: HYDROXYZINE HYDROCHLORIDE
  45. SINGULAIR [Concomitant]
     Active Substance: MONTELUKAST SODIUM
  46. CREON [Concomitant]
     Active Substance: PANCRELIPASE AMYLASE\PANCRELIPASE LIPASE\PANCRELIPASE PROTEASE
  47. AZELASTINE. [Concomitant]
     Active Substance: AZELASTINE HYDROCHLORIDE
  48. CHERATUSSIN DAC [Concomitant]
     Active Substance: CODEINE PHOSPHATE\GUAIFENESIN\PSEUDOEPHEDRINE HYDROCHLORIDE
  49. LIOTHYRONINE [Concomitant]
     Active Substance: LIOTHYRONINE
  50. ASPIRIN (E.C.) [Concomitant]
     Active Substance: ASPIRIN
  51. ATORVASTATIN [Concomitant]
     Active Substance: ATORVASTATIN
  52. FAMOTIDINE. [Concomitant]
     Active Substance: FAMOTIDINE
  53. XIFAXAN [Concomitant]
     Active Substance: RIFAXIMIN

REACTIONS (4)
  - Sputum discoloured [Not Recovered/Not Resolved]
  - Dyspnoea [Not Recovered/Not Resolved]
  - Off label use [Not Recovered/Not Resolved]
  - Bronchoscopy [Unknown]

NARRATIVE: CASE EVENT DATE: 201912
